FAERS Safety Report 16783241 (Version 1)
Quarter: 2019Q3

REPORT INFORMATION
  Report Type: Spontaneous
  Country: US (occurrence: US)
  Receive Date: 20190907
  Receipt Date: 20190907
  Transmission Date: 20191005
  Serious: No
  Sender: FDA-Public Use
  Company Number: US-009507513-1908USA006930

PATIENT
  Age: 64 Year
  Sex: Male

DRUGS (7)
  1. PANITUMUMAB [Concomitant]
     Active Substance: PANITUMUMAB
     Dosage: 1/3 OF THE ORIGINAL DOSE
  2. TRIAMCINOLONE [Concomitant]
     Active Substance: TRIAMCINOLONE
     Indication: PHOTOSENSITIVITY REACTION
     Dosage: FOR 1 WEEK, ALTERNATING WITH BETAMETHASONE
  3. PANITUMUMAB [Concomitant]
     Active Substance: PANITUMUMAB
     Indication: COLON CANCER
     Dosage: UNK
  4. IRINOTECAN HYDROCHLORIDE. [Concomitant]
     Active Substance: IRINOTECAN HYDROCHLORIDE
     Indication: COLON CANCER
  5. DIPROLENE [Suspect]
     Active Substance: BETAMETHASONE DIPROPIONATE
     Indication: PHOTOSENSITIVITY REACTION
     Dosage: UNK, BID, FOR 2 WEEKS
     Route: 061
  6. MINOCYCLINE [Concomitant]
     Active Substance: MINOCYCLINE HYDROCHLORIDE
     Indication: COLON CANCER
     Dosage: 100 MILLIGRAM, BID
     Route: 048
  7. DIPROLENE [Suspect]
     Active Substance: BETAMETHASONE DIPROPIONATE
     Dosage: ALTERNATING WITH TRIAMCINOLONE FOR 1 WEEK
     Route: 061

REACTIONS (1)
  - Product use in unapproved indication [Unknown]
